FAERS Safety Report 6528659-3 (Version None)
Quarter: 2010Q1

REPORT INFORMATION
  Report Type: 
  Country: None (occurrence: None)
  Receive Date: 20100106
  Receipt Date: 20100104
  Transmission Date: 20100710
  Serious: Yes (Hospitalization)
  Sender: FDA-Public Use
  Company Number: US-ROXANE LABORATORIES, INC.-2010-RO-00004RO

PATIENT
  Sex: Female

DRUGS (14)
  1. PREDNISONE [Suspect]
     Indication: RENAL TRANSPLANT
     Dosage: 5 MG
  2. BELATACEPT [Suspect]
     Indication: RENAL TRANSPLANT
     Route: 042
     Dates: start: 20050316
  3. BELATACEPT [Suspect]
     Route: 042
     Dates: start: 20091214
  4. CELLCEPT [Suspect]
     Indication: RENAL TRANSPLANT
     Dosage: 1000 MG
  5. DILTIAZEM [Concomitant]
  6. NORVASC [Concomitant]
  7. LISINOPRIL [Concomitant]
  8. MICARDIS [Concomitant]
  9. CALCIUM PLUS VITAMIN D [Concomitant]
  10. VITAMIN C [Concomitant]
  11. MULTI-VITAMIN [Concomitant]
  12. CRESTOR [Concomitant]
  13. TUMS [Concomitant]
  14. HECTOROL [Concomitant]

REACTIONS (3)
  - GASTROENTERITIS ESCHERICHIA COLI [None]
  - HYPOTENSION [None]
  - URINARY TRACT INFECTION [None]
